FAERS Safety Report 23495802 (Version 1)
Quarter: 2024Q1

REPORT INFORMATION
  Report Type: Spontaneous
  Country: CA (occurrence: CA)
  Receive Date: 20240207
  Receipt Date: 20240207
  Transmission Date: 20240410
  Serious: Yes (Hospitalization, Other)
  Sender: FDA-Public Use
  Company Number: CA-FRESENIUS KABI-FK202203423

PATIENT
  Age: 52 Year
  Sex: Male

DRUGS (10)
  1. VANCOMYCIN HYDROCHLORIDE [Suspect]
     Active Substance: VANCOMYCIN HYDROCHLORIDE
     Indication: Product used for unknown indication
  2. ACETAMINOPHEN [Concomitant]
     Active Substance: ACETAMINOPHEN
     Indication: Product used for unknown indication
     Dosage: FORM OF ADMIN. NOT SPECIFIED
  3. ATENOLOL [Concomitant]
     Active Substance: ATENOLOL
     Indication: Product used for unknown indication
     Dosage: FORM OF ADMIN. TABLETS
  4. IBUPROFEN [Concomitant]
     Active Substance: IBUPROFEN
     Indication: Product used for unknown indication
     Dosage: FORM OF ADMIN. NOT SPECIFIED
  5. LOPERAMIDE [Concomitant]
     Active Substance: LOPERAMIDE
     Indication: Product used for unknown indication
  6. MEROPENEM [Concomitant]
     Active Substance: MEROPENEM
     Indication: Product used for unknown indication
     Dosage: FORM OF ADMIN. POWDER FOR SOLUTION INTRAVENOUS
  7. METOCLOPRAMIDE [Concomitant]
     Active Substance: METOCLOPRAMIDE
     Indication: Product used for unknown indication
     Dosage: FORM OF ADMIN. NOT SPECIFIED
  8. PANTOPRAZOLE [Concomitant]
     Active Substance: PANTOPRAZOLE
     Indication: Product used for unknown indication
     Dosage: FORM OF ADMIN. NOT SPECIFIED
  9. PROBIOTICS NOS [Concomitant]
     Active Substance: PROBIOTICS NOS
     Indication: Product used for unknown indication
     Dosage: FORM OF ADMIN. NOT SPECIFIED
  10. TEMAZEPAM [Concomitant]
     Active Substance: TEMAZEPAM
     Indication: Product used for unknown indication
     Dosage: FORM OF ADMIN. CAPSULES

REACTIONS (6)
  - Colitis [Recovering/Resolving]
  - Pyrexia [Recovering/Resolving]
  - Transaminases increased [Recovering/Resolving]
  - Acute kidney injury [Recovering/Resolving]
  - Drug eruption [Recovering/Resolving]
  - Eosinophilia [Recovering/Resolving]
